FAERS Safety Report 24976221 (Version 2)
Quarter: 2025Q1

REPORT INFORMATION
  Report Type: Spontaneous
  Country: FR (occurrence: FR)
  Receive Date: 20250217
  Receipt Date: 20250306
  Transmission Date: 20250409
  Serious: Yes (Other)
  Sender: AVERITAS
  Company Number: FR-GRUNENTHAL-2025-102855

PATIENT
  Age: 53 Year
  Sex: Male

DRUGS (5)
  1. CAPSAICIN [Suspect]
     Active Substance: CAPSAICIN
     Indication: Back pain
     Route: 003
     Dates: start: 20250205, end: 20250205
  2. CAPSAICIN [Suspect]
     Active Substance: CAPSAICIN
     Indication: Neuralgia
  3. IXPRIM [Concomitant]
     Active Substance: ACETAMINOPHEN\TRAMADOL HYDROCHLORIDE
     Dosage: 6 DOSAGE FORM, 1/DAY
     Route: 065
  4. VENLAFAXINE [Concomitant]
     Active Substance: VENLAFAXINE HYDROCHLORIDE
     Dosage: 75 MILLIGRAM, 2/DAY
     Route: 065
  5. LIDOCAINE [Concomitant]
     Active Substance: LIDOCAINE
     Route: 065

REACTIONS (6)
  - Nausea [Recovered/Resolved]
  - Throat irritation [Recovered/Resolved]
  - Tongue discomfort [Recovered/Resolved]
  - Nasal discomfort [Recovered/Resolved]
  - Abdominal pain upper [Recovered/Resolved]
  - Paraesthesia oral [Recovered/Resolved]

NARRATIVE: CASE EVENT DATE: 20250201
